FAERS Safety Report 9699329 (Version 2)
Quarter: 2013Q4

REPORT INFORMATION
  Report Type: Spontaneous
  Country: US (occurrence: US)
  Receive Date: 20131120
  Receipt Date: 20131120
  Transmission Date: 20140711
  Serious: No
  Sender: FDA-Public Use
  Company Number: US-GILEAD-2008-0015195

PATIENT
  Sex: Male
  Weight: 96.16 kg

DRUGS (11)
  1. LETAIRIS [Suspect]
     Indication: PULMONARY ARTERIAL HYPERTENSION
     Route: 048
  2. REVATIO [Concomitant]
     Route: 048
  3. METOPROLOL [Concomitant]
     Route: 048
  4. MEVACOR [Concomitant]
     Route: 048
  5. ZETIA [Concomitant]
     Route: 048
  6. HUMALOG [Concomitant]
     Route: 058
  7. LANTUS [Concomitant]
     Route: 058
  8. METFORMIN [Concomitant]
     Route: 048
  9. AVAPRO [Concomitant]
     Route: 048
  10. ASPIRIN [Concomitant]
     Route: 048
  11. MULTIVITAMIN [Concomitant]
     Route: 048

REACTIONS (2)
  - Respiratory gas exchange disorder [None]
  - Hypoxia [None]
